FAERS Safety Report 5209600-2 (Version None)
Quarter: 2006Q4

REPORT INFORMATION
  Report Type: 
  Country: None (occurrence: None)
  Receive Date: 20061122
  Receipt Date: 20051202
  Transmission Date: 20070319
  Serious: Yes (Other)
  Sender: FDA-Public Use
  Company Number: 2005145500

PATIENT
  Age: 38 Year
  Sex: Female

DRUGS (6)
  1. LIPITOR [Suspect]
     Indication: DIABETES MELLITUS NON-INSULIN-DEPENDENT
     Dosage: 20 MG (20 MG, 1 IN 1 D), ORAL
     Route: 048
     Dates: start: 20050801, end: 20050901
  2. ANTI-DIABETICS (ANTI-DIABETICS) [Concomitant]
  3. SYNTHROID [Concomitant]
  4. ACCUPRIL [Concomitant]
  5. GLUCOTROL [Concomitant]
  6. PREMPRO [Concomitant]

REACTIONS (10)
  - ALANINE AMINOTRANSFERASE INCREASED [None]
  - ASPARTATE AMINOTRANSFERASE INCREASED [None]
  - BILIRUBIN CONJUGATED INCREASED [None]
  - BLOOD ALKALINE PHOSPHATASE INCREASED [None]
  - BLOOD BILIRUBIN INCREASED [None]
  - BOWEL MOVEMENT IRREGULARITY [None]
  - CHROMATURIA [None]
  - GALLBLADDER DISORDER [None]
  - JAUNDICE [None]
  - PRURITUS [None]
